FAERS Safety Report 21520918 (Version 1)
Quarter: 2022Q4

REPORT INFORMATION
  Report Type: Spontaneous
  Country: US (occurrence: None)
  Receive Date: 20221028
  Receipt Date: 20221028
  Transmission Date: 20230112
  Serious: Yes (Life-Threatening, Hospitalization, Other)
  Sender: FDA-Public Use
  Company Number: 2022A355108

PATIENT
  Age: 1035 Month
  Sex: Female
  Weight: 47.6 kg

DRUGS (2)
  1. SYMBICORT [Suspect]
     Active Substance: BUDESONIDE\FORMOTEROL FUMARATE DIHYDRATE
     Indication: Chronic obstructive pulmonary disease
     Dosage: 2 PUFFS TWO TIMES A DAY
     Route: 055
     Dates: start: 1995
  2. PREDNISONE [Concomitant]
     Active Substance: PREDNISONE
     Indication: Pneumonia

REACTIONS (7)
  - Cardiac disorder [Unknown]
  - Heart valve incompetence [Unknown]
  - Weight decreased [Unknown]
  - COVID-19 pneumonia [Unknown]
  - Immune system disorder [Unknown]
  - Full blood count abnormal [Unknown]
  - Pneumonia [Unknown]

NARRATIVE: CASE EVENT DATE: 20220101
